FAERS Safety Report 6566968-2 (Version None)
Quarter: 2010Q1

REPORT INFORMATION
  Report Type: 
  Country: None (occurrence: None)
  Receive Date: 20100128
  Receipt Date: 20100112
  Transmission Date: 20100710
  Serious: Yes (Other)
  Sender: FDA-Public Use
  Company Number: 2010SP002747

PATIENT
  Age: 72 Year
  Sex: Female

DRUGS (1)
  1. TICE BCG [Suspect]
     Indication: BLADDER CANCER

REACTIONS (7)
  - AUTOIMMUNE DISORDER [None]
  - CORNEAL DEPOSITS [None]
  - CYSTITIS [None]
  - HLA MARKER STUDY POSITIVE [None]
  - IRIDOCYCLITIS [None]
  - KOEPPE NODULES [None]
  - VISION BLURRED [None]
